FAERS Safety Report 18306702 (Version 1)
Quarter: 2020Q3

REPORT INFORMATION
  Report Type: Spontaneous
  Country: US (occurrence: US)
  Receive Date: 20200924
  Receipt Date: 20200924
  Transmission Date: 20201103
  Serious: Yes (Other)
  Sender: FDA-Public Use
  Company Number: US-PFIZER INC-2020368985

PATIENT

DRUGS (1)
  1. ADVIL [Suspect]
     Active Substance: IBUPROFEN
     Dosage: UNK

REACTIONS (6)
  - Rash [Unknown]
  - Haemorrhage [Unknown]
  - Gait disturbance [Unknown]
  - Contusion [Unknown]
  - Hypersensitivity [Unknown]
  - Petechiae [Unknown]
